FAERS Safety Report 9539939 (Version 2)
Quarter: 2013Q3

REPORT INFORMATION
  Report Type: Spontaneous
  Country: US (occurrence: US)
  Receive Date: 20130920
  Receipt Date: 20130920
  Transmission Date: 20140515
  Serious: No
  Sender: FDA-Public Use
  Company Number: US-PURDUE-USA-2011-0077437

PATIENT
  Age: 74 Year
  Sex: Female

DRUGS (1)
  1. HYDROMORPHONE HCL (SIMILAR TO 19-892) [Suspect]
     Indication: PAIN
     Dosage: 8 MG, DAILY
     Route: 048

REACTIONS (2)
  - Amnesia [Recovered/Resolved]
  - Nausea [Recovered/Resolved]
